FAERS Safety Report 9540203 (Version 1)
Quarter: 2013Q3

REPORT INFORMATION
  Report Type: Spontaneous
  Country: JP (occurrence: JP)
  Receive Date: 20130920
  Receipt Date: 20130920
  Transmission Date: 20140515
  Serious: Yes (Other)
  Sender: FDA-Public Use
  Company Number: JP-BRISTOL-MYERS SQUIBB COMPANY-19391390

PATIENT
  Sex: Female

DRUGS (2)
  1. ABILIFY TABS [Suspect]
     Dosage: 30MG/D:PO
     Route: 048
  2. SEROQUEL [Concomitant]
     Dosage: 400MG/D FOR 10 YEARS?REDUCED TO 50MG

REACTIONS (2)
  - Loss of consciousness [Unknown]
  - Dizziness [Unknown]
